FAERS Safety Report 6760756-X (Version None)
Quarter: 2010Q2

REPORT INFORMATION
  Report Type: 
  Country: None (occurrence: None)
  Receive Date: 20100608
  Receipt Date: 20100601
  Transmission Date: 20101027
  Serious: Yes (Other)
  Sender: FDA-Public Use
  Company Number: CA-PFIZER INC-2010068686

PATIENT
  Age: 58 Year
  Sex: Female

DRUGS (3)
  1. XALATAN [Suspect]
     Dosage: UNK
     Route: 047
     Dates: start: 20060701
  2. ESTRING [Concomitant]
     Dosage: UNK
  3. REFRESH [Concomitant]
     Dosage: DROPS, UNK

REACTIONS (1)
  - VISUAL ACUITY REDUCED [None]
